FAERS Safety Report 9893565 (Version 1)
Quarter: 2014Q1

REPORT INFORMATION
  Report Type: Spontaneous
  Country: JP (occurrence: JP)
  Receive Date: 20140213
  Receipt Date: 20140213
  Transmission Date: 20141002
  Serious: Yes (Hospitalization)
  Sender: FDA-Public Use
  Company Number: PHHY2014JP017036

PATIENT
  Age: 77 Year
  Sex: Male

DRUGS (14)
  1. FAMVIR [Suspect]
     Indication: HERPES ZOSTER
     Dosage: 500 MG, TID
     Route: 048
     Dates: start: 20140127, end: 20140130
  2. LOXONIN [Concomitant]
     Dosage: 180 MG, UNK
     Route: 048
     Dates: start: 20140127, end: 20140130
  3. MARZULENE-S [Concomitant]
     Dosage: 1.5 G, UNK
     Route: 048
     Dates: start: 20140127, end: 20140130
  4. EPPIKAJUTSUTO [Concomitant]
     Dosage: 7.5 G, UNK
     Route: 048
     Dates: start: 20140127, end: 20140130
  5. TOUKAKUJOUKITOU [Concomitant]
     Dosage: 7.5 G, UNK
     Route: 048
     Dates: start: 20140127, end: 20140130
  6. IRRIBOW [Concomitant]
     Dosage: 5 UG, UNK
     Route: 048
     Dates: start: 20140127, end: 20140130
  7. DIOVAN [Concomitant]
     Route: 048
  8. BAYASPIRIN [Concomitant]
     Route: 048
  9. PARIET [Concomitant]
     Route: 048
  10. AMARYL [Concomitant]
     Route: 048
  11. SEIBULE [Concomitant]
     Route: 048
  12. CONIEL [Concomitant]
     Route: 048
  13. MAINTATE [Concomitant]
     Route: 048
  14. ZYLORIC [Concomitant]
     Route: 048

REACTIONS (3)
  - Renal failure acute [Recovering/Resolving]
  - Urine output decreased [Unknown]
  - Abdominal distension [Unknown]
